FAERS Safety Report 9655366 (Version 1)
Quarter: 2013Q4

REPORT INFORMATION
  Report Type: Spontaneous
  Country: US (occurrence: US)
  Receive Date: 20131029
  Receipt Date: 20131029
  Transmission Date: 20140711
  Serious: Yes (Other)
  Sender: FDA-Public Use
  Company Number: US-NAPPMUNDI-USA-2012-0088049

PATIENT
  Age: 31 Year
  Sex: Female

DRUGS (3)
  1. OXYCODONE HYDROCHLORIDE (SIMILAR TO NDA 22-272) [Suspect]
     Indication: DRUG ABUSE
     Dosage: UNK
     Dates: start: 2011
  2. LORTAB /00607101/ [Suspect]
     Indication: DRUG ABUSE
     Dosage: UNK
     Dates: start: 2011
  3. PERCOCET /00867901/ [Suspect]
     Indication: DRUG ABUSE
     Dosage: UNK
     Dates: start: 2011

REACTIONS (1)
  - Drug abuse [Unknown]
